FAERS Safety Report 7434411-7 (Version None)
Quarter: 2011Q2

REPORT INFORMATION
  Report Type: 
  Country: None (occurrence: None)
  Receive Date: 20110425
  Receipt Date: 20110411
  Transmission Date: 20111010
  Serious: Yes (Hospitalization)
  Sender: FDA-Public Use
  Company Number: PHFR2011GB02192

PATIENT
  Sex: Male

DRUGS (1)
  1. CLOZARIL [Suspect]
     Indication: SCHIZOPHRENIA
     Dosage: UNK MG,
     Route: 048
     Dates: start: 20070223

REACTIONS (10)
  - DYSPHAGIA [None]
  - DIARRHOEA [None]
  - WHITE BLOOD CELL COUNT INCREASED [None]
  - DEHYDRATION [None]
  - NEUTROPHIL COUNT INCREASED [None]
  - SCHIZOPHRENIA [None]
  - CLOSTRIDIAL INFECTION [None]
  - BLADDER MASS [None]
  - INFLAMMATORY BOWEL DISEASE [None]
  - VOMITING [None]
